FAERS Safety Report 8928696 (Version 1)
Quarter: 2012Q4

REPORT INFORMATION
  Report Type: Report from Study
  Country: US (occurrence: US)
  Receive Date: 20121127
  Receipt Date: 20121127
  Transmission Date: 20130627
  Serious: Yes (Hospitalization)
  Sender: FDA-Public Use
  Company Number: US-009507513-1211USA008998

PATIENT
  Age: 68 Year
  Sex: Male
  Weight: 98.4 kg

DRUGS (13)
  1. TEMODAR [Suspect]
     Indication: GLIOBLASTOMA
     Dosage: 75 mg/m2, qd
     Route: 048
     Dates: start: 20100510, end: 20100516
  2. ERLOTINIB HYDROCHLORIDE [Suspect]
     Indication: GLIOBLASTOMA
     Dosage: 150 UNK, UNK
     Dates: start: 20100511, end: 20100515
  3. TYLENOL [Concomitant]
  4. DECADRON (DEXAMETHASONE) [Concomitant]
  5. CLONIDINE HYDROCHLORIDE [Concomitant]
  6. KEPPRA [Concomitant]
  7. ATORVASTATIN [Concomitant]
  8. PRILOSEC [Concomitant]
  9. TEMAZEPAM [Concomitant]
  10. LISINOPRIL [Concomitant]
  11. ALLOPURINOL [Concomitant]
  12. COLACE [Concomitant]
  13. THIAMINE [Concomitant]

REACTIONS (5)
  - Confusional state [Recovered/Resolved]
  - Cystitis [Unknown]
  - Hydrocephalus [Recovered/Resolved]
  - Vomiting [Recovered/Resolved]
  - Dehydration [Recovered/Resolved]
